FAERS Safety Report 17198823 (Version 1)
Quarter: 2019Q4

REPORT INFORMATION
  Report Type: Spontaneous
  Country: US (occurrence: US)
  Receive Date: 20191203
  Receipt Date: 20191203
  Transmission Date: 20200122
  Serious: No
  Sender: FDA-Public Use
  Company Number: None

PATIENT
  Age: 15 Year
  Sex: Female

DRUGS (5)
  1. CREON [Suspect]
     Active Substance: PANCRELIPASE AMYLASE\PANCRELIPASE LIPASE\PANCRELIPASE PROTEASE
     Indication: CYSTIC FIBROSIS
     Dosage: ?          OTHER STRENGTH:12000 UNIT;?
     Route: 048
     Dates: start: 20131109
  2. BACTRIM DS [Concomitant]
     Active Substance: SULFAMETHOXAZOLE\TRIMETHOPRIM
  3. ZOLOFT [Concomitant]
     Active Substance: SERTRALINE HYDROCHLORIDE
  4. ALBUTEROL. [Concomitant]
     Active Substance: ALBUTEROL
  5. AQUADEKS [Concomitant]
     Active Substance: MINERALS\VITAMINS

REACTIONS (2)
  - Dyspnoea [None]
  - Cystic fibrosis respiratory infection suppression [None]

NARRATIVE: CASE EVENT DATE: 20191125
